FAERS Safety Report 16196283 (Version 2)
Quarter: 2019Q2

REPORT INFORMATION
  Report Type: Spontaneous
  Country: FR (occurrence: FR)
  Receive Date: 20190415
  Receipt Date: 20190520
  Transmission Date: 20190711
  Serious: Yes (Life-Threatening, Hospitalization, Other)
  Sender: FDA-Public Use
  Company Number: FR-ROCHE-2298598

PATIENT
  Age: 34 Year
  Sex: Female
  Weight: 86 kg

DRUGS (5)
  1. HERCEPTIN [Suspect]
     Active Substance: TRASTUZUMAB
     Indication: BREAST CANCER
     Route: 042
     Dates: start: 20181105, end: 20190207
  2. HERCEPTIN [Suspect]
     Active Substance: TRASTUZUMAB
     Indication: BREAST CANCER
     Dosage: CYCLE 1 (LOAD DOSE) ON 05/NOV/2018, CYCLE 2 ON 06/DEC/2018, CYCLE 3 ON 17/JAN/2019, CYCLE 4 ON 27/JA
     Route: 058
     Dates: start: 20190228
  3. PERJETA [Concomitant]
     Active Substance: PERTUZUMAB
     Indication: BREAST CANCER
     Route: 065
     Dates: start: 20181105
  4. TAXOTERE [Concomitant]
     Active Substance: DOCETAXEL
     Indication: BREAST CANCER
     Route: 065
     Dates: start: 20181105
  5. LEXOMIL [Concomitant]
     Active Substance: BROMAZEPAM
     Indication: ANXIETY

REACTIONS (12)
  - Suicide attempt [Unknown]
  - Flat affect [Recovered/Resolved]
  - Cognitive disorder [Not Recovered/Not Resolved]
  - Confusional state [Recovered/Resolved]
  - Psychiatric decompensation [Unknown]
  - Derealisation [Not Recovered/Not Resolved]
  - Metrorrhagia [Recovered/Resolved]
  - Fear [Recovered/Resolved]
  - Asthenia [Recovered/Resolved]
  - Crying [Recovered/Resolved]
  - Hypersomnia [Not Recovered/Not Resolved]
  - Affect lability [Not Recovered/Not Resolved]

NARRATIVE: CASE EVENT DATE: 20190228
